FAERS Safety Report 18565680 (Version 4)
Quarter: 2024Q1

REPORT INFORMATION
  Report Type: Spontaneous
  Country: US (occurrence: US)
  Receive Date: 20201201
  Receipt Date: 20240119
  Transmission Date: 20240409
  Serious: No
  Sender: FDA-Public Use
  Company Number: US-PFIZER INC-2019175144

PATIENT
  Age: 72 Year
  Sex: Female
  Weight: 54.43 kg

DRUGS (3)
  1. PREMPRO [Suspect]
     Active Substance: ESTROGENS, CONJUGATED\MEDROXYPROGESTERONE ACETATE
     Indication: Hot flush
     Dosage: 1 DF, ALTERNATE DAY (1 TABLET BY MOUTH EVERY OTHER DAY)
     Route: 048
  2. PREMPRO [Suspect]
     Active Substance: ESTROGENS, CONJUGATED\MEDROXYPROGESTERONE ACETATE
     Indication: Night sweats
     Dosage: 1 DF, WEEKLY
     Route: 048
  3. LEVOTHYROXINE [Concomitant]
     Active Substance: LEVOTHYROXINE\LEVOTHYROXINE SODIUM
     Indication: Thyroid disorder
     Dosage: UNK (100MG, 1 TABLET BY MOUTH DAILY AND ON SUNDAYS SHE TAKES 50MG)/(STARTED THIS ABOUT 30 YEARS AGO)
     Route: 048

REACTIONS (6)
  - Night sweats [Unknown]
  - Hot flush [Unknown]
  - Irritability [Unknown]
  - Off label use [Unknown]
  - Product use issue [Unknown]
  - Intentional product misuse [Unknown]
